FAERS Safety Report 22088936 (Version 1)
Quarter: 2023Q1

REPORT INFORMATION
  Report Type: Spontaneous
  Country: ES (occurrence: ES)
  Receive Date: 20230313
  Receipt Date: 20230313
  Transmission Date: 20230417
  Serious: Yes (Other)
  Sender: FDA-Public Use
  Company Number: ES-CHEPLA-2023003122

PATIENT
  Age: 19 Year
  Sex: Male

DRUGS (5)
  1. VALGANCICLOVIR [Suspect]
     Active Substance: VALGANCICLOVIR
     Indication: Cytomegalovirus infection reactivation
  2. GANCICLOVIR [Suspect]
     Active Substance: GANCICLOVIR
     Indication: Encephalitis cytomegalovirus
  3. GANCICLOVIR [Suspect]
     Active Substance: GANCICLOVIR
     Indication: Encephalitis cytomegalovirus
  4. FOSCARNET [Suspect]
     Active Substance: FOSCARNET
     Indication: Encephalitis cytomegalovirus
  5. IMMUNOGLOBULIN [Concomitant]

REACTIONS (3)
  - Toxicity to various agents [Unknown]
  - Product use in unapproved indication [Recovered/Resolved]
  - Drug ineffective [Unknown]
